FAERS Safety Report 13042817 (Version 1)
Quarter: 2016Q4

REPORT INFORMATION
  Report Type: Report from Study
  Country: DE (occurrence: DE)
  Receive Date: 20161219
  Receipt Date: 20161219
  Transmission Date: 20170207
  Serious: Yes (Hospitalization, Other)
  Sender: FDA-Public Use
  Company Number: DE-GILEAD-2016-0249159

PATIENT
  Age: 61 Year
  Sex: Male
  Weight: 74 kg

DRUGS (17)
  1. LANTUS [Concomitant]
     Active Substance: INSULIN GLARGINE
  2. ASPIRIN. [Concomitant]
     Active Substance: ASPIRIN
  3. LEDIPASVIR/SOFOSBUVIR [Suspect]
     Active Substance: LEDIPASVIR\SOFOSBUVIR
     Indication: CHRONIC HEPATITIS C
     Dosage: 90 MG, UNK
     Route: 048
     Dates: start: 20150820, end: 20151111
  4. FORMATRIS [Concomitant]
     Active Substance: FORMOTEROL FUMARATE
  5. PRAMIPEXOL [Concomitant]
     Active Substance: PRAMIPEXOLE
  6. SIRDALUD [Concomitant]
     Active Substance: TIZANIDINE
  7. NOVOPULMON [Concomitant]
     Active Substance: BUDESONIDE
  8. VALGANCICLOVIR. [Concomitant]
     Active Substance: VALGANCICLOVIR
  9. HCT [Concomitant]
     Active Substance: HYDROCHLOROTHIAZIDE
  10. SALBUTAMOL [Concomitant]
     Active Substance: ALBUTEROL
  11. PANTOZOL [Concomitant]
     Active Substance: PANTOPRAZOLE SODIUM
  12. RIBAVIRINE [Suspect]
     Active Substance: RIBAVIRIN
     Indication: CHRONIC HEPATITIS C
     Dosage: 1000 MG, QD
     Route: 048
     Dates: start: 20150819, end: 20151111
  13. HUMALOG [Concomitant]
     Active Substance: INSULIN LISPRO
  14. TORASEMID [Concomitant]
     Active Substance: TORSEMIDE
  15. TOREM                              /01036501/ [Concomitant]
     Active Substance: TORSEMIDE
  16. RAMIPRIL. [Concomitant]
     Active Substance: RAMIPRIL
  17. SPIRONOLACTONE. [Concomitant]
     Active Substance: SPIRONOLACTONE

REACTIONS (1)
  - Liver transplant [Recovering/Resolving]

NARRATIVE: CASE EVENT DATE: 20160615
